FAERS Safety Report 19697411 (Version 2)
Quarter: 2021Q3

REPORT INFORMATION
  Report Type: Spontaneous
  Country: US (occurrence: US)
  Receive Date: 20210813
  Receipt Date: 20210924
  Transmission Date: 20211014
  Serious: Yes (Other)
  Sender: FDA-Public Use
  Company Number: US-DRREDDYS-SPO/USA/21/0136671

PATIENT
  Age: 69 Year
  Sex: Male

DRUGS (9)
  1. GABAPENTIN. [Suspect]
     Active Substance: GABAPENTIN
     Dosage: MORNING
     Dates: end: 201807
  2. OLANZAPINE FILM?COATED TABLET [Suspect]
     Active Substance: OLANZAPINE
     Indication: BIPOLAR DISORDER
     Dates: start: 201612, end: 201701
  3. PRAMIPEXOLE. [Concomitant]
     Active Substance: PRAMIPEXOLE
     Indication: BIPOLAR DISORDER
     Dates: end: 201707
  4. LAMOTRIGINE TABLETS [Concomitant]
     Active Substance: LAMOTRIGINE
     Dosage: PM
     Dates: start: 201803
  5. GABAPENTIN. [Suspect]
     Active Substance: GABAPENTIN
     Dosage: BEDTIME
     Dates: end: 201808
  6. QUETIAPINE FUMARATE TABLETS [Suspect]
     Active Substance: QUETIAPINE FUMARATE
     Indication: BIPOLAR DISORDER
     Dates: start: 201612, end: 201701
  7. LAMOTRIGINE TABLETS [Concomitant]
     Active Substance: LAMOTRIGINE
     Dosage: AM
     Dates: start: 201803
  8. GABAPENTIN. [Suspect]
     Active Substance: GABAPENTIN
     Indication: BIPOLAR DISORDER
     Dosage: BEDTIME
     Dates: end: 201611
  9. LAMOTRIGINE TABLETS [Concomitant]
     Active Substance: LAMOTRIGINE
     Indication: BIPOLAR DISORDER
     Dates: end: 201802

REACTIONS (4)
  - Condition aggravated [Recovering/Resolving]
  - Intentional product misuse [Recovering/Resolving]
  - Restless legs syndrome [Recovering/Resolving]
  - Self-medication [Recovering/Resolving]

NARRATIVE: CASE EVENT DATE: 201701
